FAERS Safety Report 20843347 (Version 1)
Quarter: 2022Q2

REPORT INFORMATION
  Report Type: Spontaneous
  Country: US (occurrence: None)
  Receive Date: 20220518
  Receipt Date: 20220518
  Transmission Date: 20220720
  Serious: Yes (Other)
  Sender: FDA-Public Use
  Company Number: US-ROCHE-3096096

PATIENT
  Sex: Male

DRUGS (2)
  1. ROZLYTREK [Suspect]
     Active Substance: ENTRECTINIB
     Indication: Lung neoplasm malignant
     Route: 048
     Dates: start: 202203
  2. ROZLYTREK [Suspect]
     Active Substance: ENTRECTINIB
     Indication: Bronchial carcinoma

REACTIONS (1)
  - Urinary retention [Unknown]
